FAERS Safety Report 8685232 (Version 6)
Quarter: 2014Q1

REPORT INFORMATION
  Report Type: Spontaneous
  Country: US (occurrence: US)
  Receive Date: 20120726
  Receipt Date: 20140319
  Transmission Date: 20141002
  Serious: Yes (Other)
  Sender: FDA-Public Use
  Company Number: US-ASTRAZENECA-2011SE47850

PATIENT
  Age: 59 Year
  Sex: Female
  Weight: 63.5 kg

DRUGS (11)
  1. SEROQUEL [Suspect]
     Indication: BIPOLAR DISORDER
     Route: 048
  2. SEROQUEL [Suspect]
     Indication: BIPOLAR DISORDER
     Route: 048
     Dates: start: 2012, end: 2014
  3. SEROQUEL [Suspect]
     Indication: BIPOLAR DISORDER
     Route: 048
  4. DEPAKOTE [Concomitant]
     Indication: BIPOLAR DISORDER
     Route: 048
     Dates: start: 2014
  5. MORPHINE [Concomitant]
     Indication: PAIN
     Route: 048
     Dates: start: 2012
  6. FLEXERIL [Concomitant]
     Route: 048
  7. LITHIUM [Concomitant]
     Route: 048
  8. LOVASTATIN [Concomitant]
     Route: 048
  9. LEVOTHYROXINE [Concomitant]
     Indication: THYROID DISORDER
     Dosage: 50MIN DAILY
     Route: 048
  10. CLONAZEPAM [Concomitant]
     Route: 048
  11. HYDROCODONE [Concomitant]
     Indication: PAIN IN EXTREMITY
     Dosage: 7.5/325
     Route: 048

REACTIONS (9)
  - Ovarian neoplasm [Unknown]
  - Insomnia [Unknown]
  - Limb injury [Unknown]
  - Laryngitis [Unknown]
  - Mania [Unknown]
  - Feeling of despair [Unknown]
  - Off label use [Unknown]
  - Intentional drug misuse [Unknown]
  - Drug dose omission [Unknown]
